FAERS Safety Report 6501742-4 (Version None)
Quarter: 2009Q4

REPORT INFORMATION
  Report Type: 
  Country: None (occurrence: None)
  Receive Date: 20091207
  Receipt Date: 20091113
  Transmission Date: 20100525
  Serious: Yes (Other)
  Sender: FDA-Public Use
  Company Number: CF763620

PATIENT
  Sex: Female

DRUGS (1)
  1. BLINK TEARS LUBRICATING EYE DROPS [Suspect]
     Indication: DRY EYE
     Dates: start: 20091001, end: 20091001

REACTIONS (7)
  - EYE IRRITATION [None]
  - EYE PAIN [None]
  - FUNGAL INFECTION [None]
  - LACRIMATION INCREASED [None]
  - OCULAR HYPERAEMIA [None]
  - ULCERATIVE KERATITIS [None]
  - VISION BLURRED [None]
